FAERS Safety Report 7403113-5 (Version None)
Quarter: 2011Q1

REPORT INFORMATION
  Report Type: 
  Country: None (occurrence: None)
  Receive Date: 20110330
  Receipt Date: 20110323
  Transmission Date: 20110831
  Serious: No
  Sender: FDA-Public Use
  Company Number: 2011-00122

PATIENT
  Sex: Male
  Weight: 67.1324 kg

DRUGS (3)
  1. ZICAM EXTREME CONGESTION RELIEF [Suspect]
     Dosage: ONGOING
  2. ZICAM INSTENSE SINUS RELIEF [Suspect]
     Dosage: ONGOING
  3. TRAZODONE HCL [Concomitant]

REACTIONS (2)
  - AGEUSIA [None]
  - ANOSMIA [None]
